FAERS Safety Report 7221128-7 (Version None)
Quarter: 2011Q1

REPORT INFORMATION
  Report Type: 
  Country: None (occurrence: None)
  Receive Date: 20110112
  Receipt Date: 20110106
  Transmission Date: 20110831
  Serious: No
  Sender: FDA-Public Use
  Company Number: US-PFIZER INC-2010164166

PATIENT
  Sex: Male
  Weight: 83.9 kg

DRUGS (10)
  1. LYRICA [Suspect]
     Indication: NEURALGIA
     Dosage: 50 MG, 3X/DAY
     Dates: start: 20100801
  2. TYLENOL [Concomitant]
     Indication: ARTHRITIS
     Dosage: ONCE AT NIGHT
  3. LYRICA [Suspect]
     Indication: ABDOMINAL PAIN LOWER
     Dosage: 50 MG, 2X/DAY
     Route: 048
     Dates: start: 20100708, end: 20100101
  4. DOXAZOSIN [Concomitant]
     Indication: DYSURIA
     Dosage: 8 MG, UNK
  5. ALLOPURINOL [Concomitant]
     Dosage: ONCE IN MORNING
  6. OMEPRAZOLE [Concomitant]
     Indication: GASTROOESOPHAGEAL REFLUX DISEASE
     Dosage: 20 MG, UNK
  7. FINASTERIDE [Concomitant]
     Indication: BENIGN PROSTATIC HYPERPLASIA
     Dosage: UNK
  8. DOXAZOSIN [Concomitant]
     Indication: BENIGN PROSTATIC HYPERPLASIA
  9. LYRICA [Suspect]
     Indication: GROIN PAIN
  10. COSOPT [Concomitant]
     Indication: GLAUCOMA
     Dosage: UNK
     Route: 047

REACTIONS (3)
  - APRAXIA [None]
  - BALANCE DISORDER [None]
  - DIZZINESS [None]
